FAERS Safety Report 21972889 (Version 2)
Quarter: 2023Q1

REPORT INFORMATION
  Report Type: Spontaneous
  Country: CN (occurrence: CN)
  Receive Date: 20230209
  Receipt Date: 20230215
  Transmission Date: 20230418
  Serious: Yes (Other)
  Sender: FDA-Public Use
  Company Number: CN-PFIZER INC-PV202300022160

PATIENT
  Age: 75 Year
  Sex: Male
  Weight: 55 kg

DRUGS (7)
  1. SOLU-MEDROL [Suspect]
     Active Substance: METHYLPREDNISOLONE SODIUM SUCCINATE
     Indication: Antiinflammatory therapy
     Dosage: 40 MG, 1X/DAY
     Route: 041
     Dates: start: 20230116, end: 20230119
  2. PULMICORT TURBUHALER [Suspect]
     Active Substance: BUDESONIDE
     Indication: Antiinflammatory therapy
     Dosage: 1 MG, 3X/DAY
     Dates: start: 20230106, end: 20230116
  3. METHYLPREDNISOLONE SODIUM SUCCINATE [Suspect]
     Active Substance: METHYLPREDNISOLONE SODIUM SUCCINATE
     Indication: Antiinflammatory therapy
     Dosage: 40 MG, 2X/DAY
     Route: 041
     Dates: start: 20230115, end: 20230116
  4. METHYLPREDNISOLONE [Suspect]
     Active Substance: METHYLPREDNISOLONE
     Indication: Antiinflammatory therapy
     Dosage: 8 MG, 1X/DAY
     Route: 048
     Dates: start: 20230108, end: 20230115
  5. SODIUM CHLORIDE [Concomitant]
     Active Substance: SODIUM CHLORIDE
     Indication: Vehicle solution use
     Dosage: 3 MG, 3X/DAY
     Dates: start: 20230106, end: 20230116
  6. SODIUM CHLORIDE [Concomitant]
     Active Substance: SODIUM CHLORIDE
     Indication: Vehicle solution use
     Dosage: 100 ML, 1X/DAY
     Route: 041
     Dates: start: 20230116, end: 20230119
  7. DEXTROSE [Concomitant]
     Active Substance: DEXTROSE
     Indication: Vehicle solution use
     Dosage: 100 ML, 2X/DAY
     Route: 041
     Dates: start: 20230115, end: 20230116

REACTIONS (3)
  - Superinfection [Recovered/Resolved]
  - Respiratory tract infection fungal [Recovering/Resolving]
  - Oropharyngitis fungal [Recovering/Resolving]

NARRATIVE: CASE EVENT DATE: 20230117
